FAERS Safety Report 20394033 (Version 1)
Quarter: 2022Q1

REPORT INFORMATION
  Report Type: Spontaneous
  Country: CN (occurrence: CN)
  Receive Date: 20220129
  Receipt Date: 20220129
  Transmission Date: 20220423
  Serious: Yes (Other)
  Sender: FDA-Public Use
  Company Number: CN-ABBVIE-22K-035-4253515-00

PATIENT
  Age: 62 Year
  Sex: Male
  Weight: 69 kg

DRUGS (5)
  1. VALPROATE SODIUM [Suspect]
     Active Substance: VALPROATE SODIUM
     Indication: Epilepsy
     Route: 048
     Dates: start: 20181113, end: 20181118
  2. ATORVASTATIN CALCIUM [Suspect]
     Active Substance: ATORVASTATIN CALCIUM
     Indication: Arteriosclerosis
     Route: 048
     Dates: start: 20181116, end: 20181117
  3. GINKGO [Suspect]
     Active Substance: GINKGO
     Indication: Vasodilatation
     Route: 048
     Dates: start: 20181112, end: 20181130
  4. PANTOPRAZOLE SODIUM [Concomitant]
     Active Substance: PANTOPRAZOLE SODIUM
     Indication: Product used for unknown indication
     Route: 048
     Dates: start: 20181116, end: 20181122
  5. BETAHISTINE MESILATE [Concomitant]
     Active Substance: BETAHISTINE MESILATE
     Indication: Product used for unknown indication
     Route: 065
     Dates: start: 20181111, end: 20181118

REACTIONS (1)
  - Hepatic enzyme increased [Recovering/Resolving]
